FAERS Safety Report 9456563 (Version 4)
Quarter: 2014Q4

REPORT INFORMATION
  Report Type: Spontaneous
  Country: US (occurrence: US)
  Receive Date: 20130813
  Receipt Date: 20141022
  Transmission Date: 20150529
  Serious: Yes (Hospitalization)
  Sender: FDA-Public Use
  Company Number: US-GLAXOSMITHKLINE-A1037387A

PATIENT
  Age: 62 Year
  Sex: Female

DRUGS (12)
  1. ALDACTONE [Concomitant]
     Active Substance: SPIRONOLACTONE
  2. ASPIRIN. [Concomitant]
     Active Substance: ASPIRIN
  3. WELLBUTRIN SR [Suspect]
     Active Substance: BUPROPION HYDROCHLORIDE
     Indication: DEPRESSION
     Dosage: 150 MG
     Dates: start: 200812
  4. ADVAIR HFA [Suspect]
     Active Substance: FLUTICASONE PROPIONATE\SALMETEROL XINAFOATE
     Indication: CHRONIC OBSTRUCTIVE PULMONARY DISEASE
     Dosage: 500/50 MCG, 1 PUFF TWICE DAILY AS OF 18 JULY 2014
     Route: 055
     Dates: start: 200901
  5. AMIODARONE [Concomitant]
     Active Substance: AMIODARONE
  6. ALLOPURINOL. [Concomitant]
     Active Substance: ALLOPURINOL
  7. DIOVAN [Concomitant]
     Active Substance: VALSARTAN
  8. CARVEDILOL. [Concomitant]
     Active Substance: CARVEDILOL
  9. WELLBUTRIN SR [Suspect]
     Active Substance: BUPROPION HYDROCHLORIDE
     Indication: MOOD SWINGS
  10. CRESTOR [Concomitant]
     Active Substance: ROSUVASTATIN CALCIUM
  11. COREG CR [Suspect]
     Active Substance: CARVEDILOL PHOSPHATE
     Indication: MYOCARDIAL INFARCTION
     Dosage: 80 MG
     Dates: start: 20090102
  12. BUDESONIDE. [Concomitant]
     Active Substance: BUDESONIDE

REACTIONS (5)
  - Chest discomfort [Recovering/Resolving]
  - Chronic obstructive pulmonary disease [Unknown]
  - Supraventricular tachycardia [Recovering/Resolving]
  - Heart rate increased [Recovering/Resolving]
  - Medical device complication [Unknown]

NARRATIVE: CASE EVENT DATE: 20140705
